FAERS Safety Report 8173772-0 (Version None)
Quarter: 2012Q1

REPORT INFORMATION
  Report Type: 
  Country: None (occurrence: None)
  Receive Date: 20120227
  Receipt Date: 20120215
  Transmission Date: 20120608
  Serious: Yes (Hospitalization, Other)
  Sender: FDA-Public Use
  Company Number: 130117

PATIENT
  Age: 39 Year
  Sex: Female

DRUGS (4)
  1. HALOPERIDOL DECANOATE [Suspect]
     Indication: BIPOLAR DISORDER
     Dosage: 5 MG AT BEDTIME
  2. HALOPERIDOL DECANOATE [Suspect]
     Indication: DEPRESSION
     Dosage: 5 MG AT BEDTIME
  3. HALOPERIDOL DECANOATE [Suspect]
     Indication: ANXIETY
     Dosage: 5 MG AT BEDTIME
  4. BUPRENORPHINE HCL [Suspect]
     Dosage: 4 MG, SUBLINGUALLY, 8 MG
     Route: 060

REACTIONS (4)
  - DEPRESSED LEVEL OF CONSCIOUSNESS [None]
  - OVERDOSE [None]
  - FATIGUE [None]
  - UNRESPONSIVE TO STIMULI [None]
